FAERS Safety Report 7604553-1 (Version None)
Quarter: 2011Q3

REPORT INFORMATION
  Report Type: 
  Country: None (occurrence: None)
  Receive Date: 20110712
  Receipt Date: 20110701
  Transmission Date: 20111222
  Serious: Yes (Hospitalization)
  Sender: FDA-Public Use
  Company Number: US-JNJFOC-20110600167

PATIENT
  Sex: Male
  Weight: 22.3 kg

DRUGS (7)
  1. REMICADE [Suspect]
     Indication: CROHN'S DISEASE
     Route: 042
  2. ENSURE [Concomitant]
  3. PROBIOTICS [Concomitant]
  4. ANTIBIOTICS [Concomitant]
     Indication: INFLAMMATORY BOWEL DISEASE
  5. MULTI-VITAMINS [Concomitant]
  6. PERIACTIN [Concomitant]
  7. MERCAPTOPURINE [Concomitant]

REACTIONS (1)
  - ANAL FISTULA [None]
